FAERS Safety Report 20390129 (Version 2)
Quarter: 2022Q1

REPORT INFORMATION
  Report Type: Report from Study
  Country: NL (occurrence: NL)
  Receive Date: 20220128
  Receipt Date: 20220307
  Transmission Date: 20220424
  Serious: Yes (Death)
  Sender: FDA-Public Use
  Company Number: NL-NOVARTISPH-NVSC2022NL018091

PATIENT
  Age: 95 Year
  Sex: Female
  Weight: 52 kg

DRUGS (13)
  1. ACLASTA [Suspect]
     Active Substance: ZOLEDRONIC ACID
     Indication: Osteoporosis
     Dosage: 5 MG, Q12MO (PER 52 WEEKS)
     Route: 042
     Dates: start: 20200113
  2. ACLASTA [Suspect]
     Active Substance: ZOLEDRONIC ACID
     Dosage: 5 MG, Q12MO (PER 52 WEEKS)
     Route: 042
     Dates: start: 20210208
  3. BUTRANS [Concomitant]
     Active Substance: BUPRENORPHINE
     Indication: Product used for unknown indication
     Dosage: 10MCG/HOUR, QW (1 PATCH ONCE A WEEK) (PATCH)
     Route: 062
  4. DURATEARS Z [Concomitant]
     Indication: Product used for unknown indication
     Dosage: 3.5 G, PRN (EYE)
     Route: 047
  5. FUROSEMIDE [Concomitant]
     Active Substance: FUROSEMIDE
     Indication: Product used for unknown indication
     Dosage: 20 MG, QD (ONE TABLET PER DAY)
     Route: 065
  6. VIDISIC CARBOGEL [Concomitant]
     Indication: Product used for unknown indication
     Dosage: 2 MILLIGRAM PER GRAM (EYE)
     Route: 047
  7. MAGNESIUM HYDROXIDE [Concomitant]
     Active Substance: MAGNESIUM HYDROXIDE
     Indication: Product used for unknown indication
     Dosage: 724 MG, BID (2 TABLETS 2 TIMES A DAY)
     Route: 065
  8. BROMHEXINE [Concomitant]
     Active Substance: BROMHEXINE
     Indication: Product used for unknown indication
     Dosage: 8 MG, PRN
     Route: 065
  9. ACETAMINOPHEN [Concomitant]
     Active Substance: ACETAMINOPHEN
     Indication: Product used for unknown indication
     Dosage: 500 MG, BID (2 TABLETS TWICE A DAY)
     Route: 065
  10. AMLODIPINE [Concomitant]
     Active Substance: AMLODIPINE BESYLATE
     Indication: Product used for unknown indication
     Dosage: 5 MG, QD (1 TABLET ONCE A DAY)
     Route: 065
  11. CHOLECALCIFEROL [Concomitant]
     Active Substance: CHOLECALCIFEROL
     Indication: Product used for unknown indication
     Dosage: 25000 IU, QMO (1 PER MONTH)
     Route: 065
  12. LISINOPRIL [Concomitant]
     Active Substance: LISINOPRIL
     Indication: Product used for unknown indication
     Dosage: 5 MG, QD (1 TABLET ONCE A DAY)
     Route: 065
  13. PANTOPRAZOLE [Concomitant]
     Active Substance: PANTOPRAZOLE
     Indication: Product used for unknown indication
     Dosage: 40 MG, BID (1 TABLET TWICE A DAY)
     Route: 065

REACTIONS (1)
  - Gastrooesophageal reflux disease [Fatal]

NARRATIVE: CASE EVENT DATE: 20220110
